FAERS Safety Report 21302695 (Version 1)
Quarter: 2022Q3

REPORT INFORMATION
  Report Type: Spontaneous
  Country: CA (occurrence: CA)
  Receive Date: 20220907
  Receipt Date: 20220907
  Transmission Date: 20221026
  Serious: Yes (Other)
  Sender: FDA-Public Use
  Company Number: CA-PFIZER INC-202201134359

PATIENT
  Age: 36 Year
  Sex: Male

DRUGS (3)
  1. LORBRENA [Suspect]
     Active Substance: LORLATINIB
     Dosage: 75 MG, 1 EVERY 3 WEEKS
     Route: 048
  2. LORBRENA [Suspect]
     Active Substance: LORLATINIB
     Dosage: 100 MG, 1 EVERY 3 WEEKS
     Route: 048
  3. ALECTINIB [Suspect]
     Active Substance: ALECTINIB
     Dosage: UNK
     Route: 065

REACTIONS (1)
  - Hepatitis [Unknown]
